FAERS Safety Report 10452504 (Version 1)
Quarter: 2014Q3

REPORT INFORMATION
  Report Type: Not Available
  Country: US (occurrence: US)
  Receive Date: 20140915
  Receipt Date: 20140915
  Transmission Date: 20150326
  Serious: No
  Sender: FDA-Public Use
  Company Number: US-LUPIN PHARMACEUTICALS INC.-E2B_00002404

PATIENT
  Age: 54 Year
  Sex: Male
  Weight: 83.99 kg

DRUGS (2)
  1. LOSARTAN POTASSIUM TABLETS USP 25 MG [Suspect]
     Active Substance: LOSARTAN POTASSIUM
     Indication: HYPERTENSION
     Dates: start: 201406, end: 2014
  2. LOSARTAN POTASSIUM TABLETS USP 25 MG [Suspect]
     Active Substance: LOSARTAN POTASSIUM
     Dates: start: 20140801

REACTIONS (3)
  - Rash [Not Recovered/Not Resolved]
  - Wrong technique in drug usage process [Not Recovered/Not Resolved]
  - Diarrhoea [Not Recovered/Not Resolved]

NARRATIVE: CASE EVENT DATE: 201406
